FAERS Safety Report 19845755 (Version 1)
Quarter: 2021Q3

REPORT INFORMATION
  Report Type: Spontaneous
  Country: ES (occurrence: ES)
  Receive Date: 20210916
  Receipt Date: 20210916
  Transmission Date: 20211014
  Serious: Yes (Other)
  Sender: FDA-Public Use
  Company Number: PHHY2016ES079013

PATIENT
  Age: 14 Year
  Sex: Female

DRUGS (4)
  1. GENOXAL [Suspect]
     Active Substance: CYCLOPHOSPHAMIDE
     Indication: METASTATIC NEOPLASM
     Dosage: 250 MG/M2, CYCLIC (IN 21 DAYS INTERVAL)
     Route: 065
  2. GENOXAL [Suspect]
     Active Substance: CYCLOPHOSPHAMIDE
     Indication: ALVEOLAR RHABDOMYOSARCOMA
     Dosage: 250 MG/M2, CYCLIC (4 CYCLES AS MAINTENANCE THERAPY)
     Route: 065
  3. TOPOTECAN [Suspect]
     Active Substance: TOPOTECAN HYDROCHLORIDE
     Indication: ALVEOLAR RHABDOMYOSARCOMA
     Dosage: 0.75 MG/M2, CYCLIC (4 CYCLES AS MAINTENANCE THERAPY)
     Route: 065
  4. TOPOTECAN [Suspect]
     Active Substance: TOPOTECAN HYDROCHLORIDE
     Indication: METASTATIC NEOPLASM
     Dosage: 0.75 MG/M2, CYCLIC (IN 21 DAY INTERVAL)
     Route: 065

REACTIONS (2)
  - Cystitis haemorrhagic [Recovered/Resolved]
  - Therapeutic response decreased [Unknown]
